FAERS Safety Report 15384692 (Version 3)
Quarter: 2020Q1

REPORT INFORMATION
  Report Type: Spontaneous
  Country: US (occurrence: US)
  Receive Date: 20180914
  Receipt Date: 20200305
  Transmission Date: 20200409
  Serious: Yes (Hospitalization, Other)
  Sender: FDA-Public Use
  Company Number: US-ASTRAZENECA-2018SF16040

PATIENT
  Age: 79 Year
  Sex: Female
  Weight: 94.3 kg

DRUGS (37)
  1. POTASSIUM CHLORIDE. [Concomitant]
     Active Substance: POTASSIUM CHLORIDE
  2. SULAR [Concomitant]
     Active Substance: NISOLDIPINE
  3. BELLAHIST-D LA [Concomitant]
  4. MYLANTA [Concomitant]
     Active Substance: ALUMINUM HYDROXIDE\DIMETHICONE\MAGNESIUM HYDROXIDE
  5. KLOR-CON [Concomitant]
     Active Substance: POTASSIUM CHLORIDE
  6. HYZAAR [Concomitant]
     Active Substance: HYDROCHLOROTHIAZIDE\LOSARTAN POTASSIUM
  7. LORAZEPAM. [Concomitant]
     Active Substance: LORAZEPAM
  8. PLAVIX [Concomitant]
     Active Substance: CLOPIDOGREL BISULFATE
  9. ASPIRIN. [Concomitant]
     Active Substance: ASPIRIN
  10. ISORDIL [Concomitant]
     Active Substance: ISOSORBIDE DINITRATE
  11. SEROQUEL [Concomitant]
     Active Substance: QUETIAPINE FUMARATE
  12. NITRO-DUR [Concomitant]
     Active Substance: NITROGLYCERIN
     Dosage: 0.2 MG/HR 1 PATCH QD
  13. NEXIUM [Suspect]
     Active Substance: ESOMEPRAZOLE MAGNESIUM
     Indication: GASTROOESOPHAGEAL REFLUX DISEASE
     Route: 048
     Dates: start: 2007, end: 2015
  14. NEXIUM [Suspect]
     Active Substance: ESOMEPRAZOLE MAGNESIUM
     Indication: GASTROOESOPHAGEAL REFLUX DISEASE
     Route: 048
     Dates: start: 2007, end: 2009
  15. OMEPRAZOLE. [Suspect]
     Active Substance: OMEPRAZOLE
     Indication: GASTROOESOPHAGEAL REFLUX DISEASE
     Route: 065
     Dates: start: 2006
  16. RANITIDINE. [Concomitant]
     Active Substance: RANITIDINE
  17. LASIX [Concomitant]
     Active Substance: FUROSEMIDE
  18. ZEMPLAR [Concomitant]
     Active Substance: PARICALCITOL
  19. HYDRALAZINE [Concomitant]
     Active Substance: HYDRALAZINE HYDROCHLORIDE
  20. OMEPRAZOLE. [Suspect]
     Active Substance: OMEPRAZOLE
     Indication: GASTROOESOPHAGEAL REFLUX DISEASE
     Route: 065
     Dates: start: 2009, end: 2016
  21. GABAPENTIN. [Concomitant]
     Active Substance: GABAPENTIN
  22. SINGULAIR [Concomitant]
     Active Substance: MONTELUKAST SODIUM
  23. BYSTOLIC [Concomitant]
     Active Substance: NEBIVOLOL HYDROCHLORIDE
  24. CRESTOR [Concomitant]
     Active Substance: ROSUVASTATIN CALCIUM
  25. PARICALCITOL. [Concomitant]
     Active Substance: PARICALCITOL
     Route: 048
  26. ZOCOR [Concomitant]
     Active Substance: SIMVASTATIN
  27. ALLOPURINOL. [Concomitant]
     Active Substance: ALLOPURINOL
  28. CARDURA [Concomitant]
     Active Substance: DOXAZOSIN MESYLATE
  29. APRESOLINE HYDROCHLORIDE [Concomitant]
     Active Substance: HYDRALAZINE HYDROCHLORIDE
  30. DOXAZOSIN [Concomitant]
     Active Substance: DOXAZOSIN MESYLATE
  31. VALSARTAN. [Concomitant]
     Active Substance: VALSARTAN
  32. FOLVITE [Concomitant]
     Active Substance: FOLIC ACID
  33. NORCO [Concomitant]
     Active Substance: ACETAMINOPHEN\HYDROCODONE BITARTRATE
  34. ATIVAN [Concomitant]
     Active Substance: LORAZEPAM
  35. MAG-OX [Concomitant]
     Active Substance: MAGNESIUM OXIDE
  36. EVISTA [Concomitant]
     Active Substance: RALOXIFENE HYDROCHLORIDE
  37. ISOSORBIDE MONONITRATE. [Concomitant]
     Active Substance: ISOSORBIDE MONONITRATE

REACTIONS (5)
  - Acute kidney injury [Not Recovered/Not Resolved]
  - Nephrogenic anaemia [Unknown]
  - Renal failure [Unknown]
  - Chronic kidney disease [Not Recovered/Not Resolved]
  - Hyperparathyroidism secondary [Unknown]

NARRATIVE: CASE EVENT DATE: 2012
